FAERS Safety Report 12317407 (Version 2)
Quarter: 2016Q2

REPORT INFORMATION
  Report Type: Spontaneous
  Country: US (occurrence: US)
  Receive Date: 20160429
  Receipt Date: 20160608
  Transmission Date: 20160815
  Serious: No
  Sender: FDA-Public Use
  Company Number: US-PFIZER INC-2016209516

PATIENT
  Age: 65 Year
  Sex: Female

DRUGS (2)
  1. AROMASIN [Suspect]
     Active Substance: EXEMESTANE
     Indication: LYMPHADENECTOMY
  2. AROMASIN [Suspect]
     Active Substance: EXEMESTANE
     Indication: MASTECTOMY
     Dosage: 25 MG, 1X/DAY
     Dates: start: 2014

REACTIONS (1)
  - Hot flush [Recovered/Resolved]

NARRATIVE: CASE EVENT DATE: 2014
